FAERS Safety Report 9783889 (Version 2)
Quarter: 2013Q4

REPORT INFORMATION
  Report Type: Report from Study
  Country: US (occurrence: US)
  Receive Date: 20131226
  Receipt Date: 20131226
  Transmission Date: 20140711
  Serious: Yes (Hospitalization)
  Sender: FDA-Public Use
  Company Number: US-BRISTOL-MYERS SQUIBB COMPANY-19556133

PATIENT
  Age: 68 Year
  Sex: Male
  Weight: 99.77 kg

DRUGS (27)
  1. NIVOLUMAB [Suspect]
     Indication: METASTATIC MALIGNANT MELANOMA
     Dosage: DOSAGE:WEEK 1,3,4,5 OF 42 DAY CYCLE
     Route: 042
     Dates: start: 20131001
  2. IPILIMUMAB [Suspect]
     Indication: METASTATIC MALIGNANT MELANOMA
     Dosage: DOSAGE:WEEK 1,3,4,5 OF 42 DAY CYCLE
     Route: 042
     Dates: start: 20131001
  3. BLINDED: PLACEBO [Suspect]
     Indication: METASTATIC MALIGNANT MELANOMA
     Dosage: DOSAGE:WEEK 1,3,4,5 OF 42 DAY CYCLE
     Route: 042
     Dates: start: 20131001
  4. AMITRIPTYLINE [Concomitant]
  5. CITRACAL + D [Concomitant]
  6. LORTAB [Concomitant]
  7. NEXIUM [Concomitant]
  8. ROBAXIN [Concomitant]
     Dosage: DOSAGE:PER 5 HOURS/PRN
  9. TOPROL XL [Concomitant]
     Route: 048
  10. VESICARE [Concomitant]
  11. NORCO [Concomitant]
     Dosage: 5-325 MG?DOSAGE:EVERY 4HRS/PRN
     Route: 048
  12. TYLENOL [Concomitant]
     Dosage: DOSAGE:EVERY 4HRS PRN
     Route: 048
  13. ZOFRAN [Concomitant]
     Dosage: DOSAGE:EVERY 6HRS PRN
     Route: 042
  14. AMBIEN [Concomitant]
     Dosage: DOSAGE:EVERY NIGHT AT BEDTIME/PRN
     Route: 048
  15. MAALOX PLUS [Concomitant]
     Dosage: DOSAGE:EVERY 3 HOURS/PRN
     Route: 048
  16. COLACE [Concomitant]
     Dosage: DOSAGE:2 TIMES DAILY PRN
     Route: 048
  17. DULCOLAX [Concomitant]
     Dosage: DOSAGE:1TIME DAILY PRN
     Route: 054
  18. MILK OF MAGNESIA [Concomitant]
     Dosage: DOSAGE:1 TIME/DAY PRN
     Route: 048
  19. PROTONIX [Concomitant]
     Dosage: DOSAGE:PUSH 1 TIME DAILY
     Route: 042
  20. DITROPAN [Concomitant]
     Route: 048
  21. GLUCOPHAGE [Concomitant]
     Dosage: WITH MEALS
     Route: 048
  22. HUMULIN [Concomitant]
     Dosage: 1 DF:0-28 UNIT?HUMULIN-R(INSULIN REGULAR INJ FOR SLIDING SCALE USE)?EVERY 6HRS
     Route: 058
  23. DEXTROSE [Concomitant]
     Route: 042
  24. GLUCAGON [Concomitant]
     Route: 058
  25. COMPAZINE [Concomitant]
     Dosage: DOSAGE:EVERY 6 HOURS
     Route: 042
  26. DITROPAN XL [Concomitant]
  27. HUMULIN R [Concomitant]

REACTIONS (2)
  - Autoimmune hepatitis [Recovering/Resolving]
  - Drug-induced liver injury [Recovering/Resolving]
